FAERS Safety Report 10246107 (Version 1)
Quarter: 2014Q2

REPORT INFORMATION
  Report Type: Spontaneous
  Country: NL (occurrence: NL)
  Receive Date: 20140619
  Receipt Date: 20140619
  Transmission Date: 20141212
  Serious: Yes (Hospitalization)
  Sender: FDA-Public Use
  Company Number: NL-009507513-1406NLD008715

PATIENT
  Age: 84 Year
  Sex: Male

DRUGS (7)
  1. NITROFURANTOIN [Suspect]
     Indication: PRODUCT USED FOR UNKNOWN INDICATION
     Route: 048
     Dates: start: 20140317, end: 20140317
  2. SIMVASTATIN [Interacting]
     Indication: PRODUCT USED FOR UNKNOWN INDICATION
     Dosage: 1 KEER PER DAG 1 STUK(S)
     Route: 048
     Dates: start: 2014, end: 20140317
  3. ACENOCOUMAROL [Concomitant]
     Dosage: EXTRA INFO: VV
     Route: 048
  4. ALLOPURINOL [Concomitant]
     Dosage: 1 KEER PER DAG 1 STUK(S)
     Route: 048
  5. COLCHICINE [Concomitant]
     Dosage: 1 KEER PER DAG 1 STUK(S)
     Route: 048
  6. EXELON (RIVASTIGMINE) [Concomitant]
     Dosage: EXTRA INFO: VV
     Route: 062
  7. TAMSULOSIN HYDROCHLORIDE [Concomitant]
     Dosage: 1 KEER PER DAG 1 STUK(S)
     Route: 048

REACTIONS (2)
  - Liver function test abnormal [Recovered/Resolved]
  - Drug interaction [Recovered/Resolved]
